FAERS Safety Report 12077994 (Version 1)
Quarter: 2016Q1

REPORT INFORMATION
  Report Type: Spontaneous
  Country: US (occurrence: US)
  Receive Date: 20160215
  Receipt Date: 20160215
  Transmission Date: 20160526
  Serious: Yes (Other)
  Sender: FDA-Public Use
  Company Number: US-BAYER-2016-025393

PATIENT
  Age: 65 Year
  Sex: Male
  Weight: 86.17 kg

DRUGS (2)
  1. LIPITOR [Concomitant]
     Active Substance: ATORVASTATIN CALCIUM
  2. BAYER LOW DOSE [Suspect]
     Active Substance: ASPIRIN
     Dosage: 1 DF, QD
     Route: 048
     Dates: start: 2014

REACTIONS (3)
  - Cerebrovascular accident [None]
  - Carotid artery occlusion [None]
  - Product used for unknown indication [None]

NARRATIVE: CASE EVENT DATE: 2014
